FAERS Safety Report 25733501 (Version 2)
Quarter: 2025Q4

REPORT INFORMATION
  Report Type: Spontaneous
  Country: EU (occurrence: EU)
  Receive Date: 20250828
  Receipt Date: 20251028
  Transmission Date: 20260117
  Serious: Yes (Hospitalization, Other)
  Sender: BOEHRINGER INGELHEIM
  Company Number: EU-BoehringerIngelheim-2025-BI-090601

PATIENT
  Age: 45 Year
  Sex: Male

DRUGS (21)
  1. PRAMIPEXOLE [Suspect]
     Active Substance: PRAMIPEXOLE
     Indication: Parkinson^s disease
     Dates: start: 20130114
  2. PRAMIPEXOLE [Suspect]
     Active Substance: PRAMIPEXOLE
  3. PRAMIPEXOLE [Suspect]
     Active Substance: PRAMIPEXOLE
  4. PRAMIPEXOLE [Suspect]
     Active Substance: PRAMIPEXOLE
  5. PRAMIPEXOLE [Suspect]
     Active Substance: PRAMIPEXOLE
  6. PRAMIPEXOLE [Suspect]
     Active Substance: PRAMIPEXOLE
     Dosage: 1.05+0.52MG
     Dates: start: 2016, end: 201609
  7. AZILECT [Concomitant]
     Active Substance: RASAGILINE MESYLATE
     Indication: Parkinson^s disease
     Dates: start: 20120927
  8. BENSERAZIDE HYDROCHLORIDE\LEVODOPA [Concomitant]
     Active Substance: BENSERAZIDE HYDROCHLORIDE\LEVODOPA
     Indication: Product used for unknown indication
     Dates: start: 20141230
  9. BENSERAZIDE HYDROCHLORIDE\LEVODOPA [Concomitant]
     Active Substance: BENSERAZIDE HYDROCHLORIDE\LEVODOPA
     Dosage: 125 + 62,5MG THREE TIMES A DAY
     Dates: start: 20160218
  10. BENSERAZIDE HYDROCHLORIDE\LEVODOPA [Concomitant]
     Active Substance: BENSERAZIDE HYDROCHLORIDE\LEVODOPA
     Dosage: THREE TIMES A DAY
     Dates: start: 20150907
  11. BENSERAZIDE HYDROCHLORIDE\LEVODOPA [Concomitant]
     Active Substance: BENSERAZIDE HYDROCHLORIDE\LEVODOPA
     Dosage: 125 + 62,5MG FOUR TIMES A DAY
     Dates: start: 20160721
  12. EFFEXOR [Concomitant]
     Active Substance: VENLAFAXINE HYDROCHLORIDE
     Indication: Depression
     Dosage: EFFEXOR 37.5 MG AND EFFEXOR LP 75 MG CAPSULE
  13. LAMICTAL [Concomitant]
     Active Substance: LAMOTRIGINE
     Indication: Product used for unknown indication
  14. CHOLECALCIFEROL [Concomitant]
     Active Substance: CHOLECALCIFEROL
     Indication: Product used for unknown indication
     Dosage: 100000 IU/2ML
     Dates: start: 20121105
  15. PRAZEPAM [Concomitant]
     Active Substance: PRAZEPAM
     Indication: Anxiety
     Dosage: HALF TABLET OF 10MG, ONE TO TWO PER DAY
  16. PROPRANOLOL HYDROCHLORIDE [Concomitant]
     Active Substance: PROPRANOLOL HYDROCHLORIDE
     Indication: Stress
     Dosage: QUARTER TO HALF TABLET OF 40MG ONCE DAILY
     Dates: start: 20130617
  17. PROPECIA [Concomitant]
     Active Substance: FINASTERIDE
     Indication: Product used for unknown indication
     Dates: start: 20121105
  18. DOMPERIDONE [Concomitant]
     Active Substance: DOMPERIDONE
     Indication: Product used for unknown indication
     Dosage: 1 TO 2 TABLETS 3 TIMES A DAY 15 TO 30 MINUTES BEFORE MEALS. MAXIMUM 8 TABLETS PER DAY.
  19. NEUPRO [Concomitant]
     Active Substance: ROTIGOTINE
     Indication: Product used for unknown indication
     Dates: start: 20160901
  20. QUETIAPINE FUMARATE [Concomitant]
     Active Substance: QUETIAPINE FUMARATE
     Indication: Product used for unknown indication
     Dates: start: 20160922
  21. ZOLPIDEM TARTRATE [Concomitant]
     Active Substance: ZOLPIDEM TARTRATE
     Indication: Product used for unknown indication
     Dosage: 1 TABLET BEFORE GOING TO BED.
     Dates: start: 20161124

REACTIONS (19)
  - Obsessive-compulsive disorder [Not Recovered/Not Resolved]
  - Gambling disorder [Not Recovered/Not Resolved]
  - Dopamine dysregulation syndrome [Unknown]
  - Suicide attempt [Recovered/Resolved]
  - Insomnia [Unknown]
  - Compulsive shopping [Unknown]
  - Weight increased [Unknown]
  - Aggression [Unknown]
  - Fatigue [Unknown]
  - Burnout syndrome [Unknown]
  - Hypersexuality [Not Recovered/Not Resolved]
  - Alcoholism [Not Recovered/Not Resolved]
  - Tobacco abuse [Unknown]
  - Abnormal behaviour [Unknown]
  - Apathy [Unknown]
  - Bulimia nervosa [Unknown]
  - Dyskinesia [Unknown]
  - Bipolar disorder [Unknown]
  - Anxiety [Unknown]

NARRATIVE: CASE EVENT DATE: 20130101
